FAERS Safety Report 10114105 (Version 2)
Quarter: 2015Q1

REPORT INFORMATION
  Report Type: Other
  Country: US (occurrence: US)
  Receive Date: 20140425
  Receipt Date: 20150127
  Transmission Date: 20150720
  Serious: Yes (Hospitalization, Other)
  Sender: FDA-Public Use
  Company Number: US-GSKPPD-2014GSK014159

PATIENT
  Age: 56 Year
  Sex: Female

DRUGS (5)
  1. PROCARDIA XL [Concomitant]
     Active Substance: NIFEDIPINE
  2. AVANDIA [Suspect]
     Active Substance: ROSIGLITAZONE MALEATE
     Indication: DIABETES MELLITUS
     Dosage: AVANDIA WAS NOT LISTED AMONG THE PATIENTS RECORDS REVIEWED.
     Route: 048
  3. PRINIVIL [Concomitant]
     Active Substance: LISINOPRIL
  4. LASIX [Concomitant]
     Active Substance: FUROSEMIDE
  5. METOPROLOL [Concomitant]
     Active Substance: METOPROLOL

REACTIONS (3)
  - Cerebrovascular accident [Unknown]
  - Cardiac failure congestive [Recovered/Resolved]
  - Hypertensive emergency [Recovered/Resolved]

NARRATIVE: CASE EVENT DATE: 20101126
